FAERS Safety Report 8450744-X (Version None)
Quarter: 2012Q2

REPORT INFORMATION
  Report Type: 
  Country: None (occurrence: None)
  Receive Date: 20120620
  Receipt Date: 20120614
  Transmission Date: 20120825
  Serious: Yes (Hospitalization)
  Sender: FDA-Public Use
  Company Number: CA-JNJFOC-20120607615

PATIENT
  Sex: Female
  Weight: 74 kg

DRUGS (2)
  1. METHOTREXATE [Concomitant]
     Dosage: 1 CC
     Route: 058
  2. REMICADE [Suspect]
     Indication: PSORIATIC ARTHROPATHY
     Route: 042
     Dates: start: 20070101

REACTIONS (2)
  - HYSTERECTOMY [None]
  - SALPINGO-OOPHORECTOMY [None]
